FAERS Safety Report 24786261 (Version 3)
Quarter: 2025Q4

REPORT INFORMATION
  Report Type: Spontaneous
  Country: EU (occurrence: None)
  Receive Date: 20241229
  Receipt Date: 20251210
  Transmission Date: 20260118
  Serious: Yes (Life-Threatening, Hospitalization, Other)
  Sender: ORGANON
  Company Number: None

PATIENT
  Age: 80 Year
  Sex: Female

DRUGS (9)
  1. SIMVASTATIN [Interacting]
     Active Substance: SIMVASTATIN
     Dosage: UNK
  2. ALENDRONATE SODIUM [Interacting]
     Active Substance: ALENDRONATE SODIUM
     Dosage: UNK
  3. OMNIPAQUE [Interacting]
     Active Substance: IOHEXOL
     Indication: Diagnostic procedure
     Dosage: 100 ML (INTRAARTERIAL USE)
  4. PEMBROLIZUMAB [Interacting]
     Active Substance: PEMBROLIZUMAB
     Dosage: UNK
  5. PACLITAXEL [Interacting]
     Active Substance: PACLITAXEL
     Dosage: UNK
  6. CARBOPLATIN [Interacting]
     Active Substance: CARBOPLATIN
     Dosage: UNK (CONCENTRATE AND SOLVENT FOR SOLUTION FOR INFUSION)
  7. PROPRANOLOL HYDROCHLORIDE [Interacting]
     Active Substance: PROPRANOLOL HYDROCHLORIDE
     Dosage: UNK
  8. ESCITALOPRAM [Interacting]
     Active Substance: ESCITALOPRAM OXALATE
     Dosage: UNK
  9. RIVOTRIL [Interacting]
     Active Substance: CLONAZEPAM
     Dosage: UNK

REACTIONS (3)
  - Anaphylactic reaction [Recovered/Resolved with Sequelae]
  - Loss of consciousness [Recovered/Resolved with Sequelae]
  - Cardiac arrest [Recovered/Resolved with Sequelae]

NARRATIVE: CASE EVENT DATE: 20241128
